FAERS Safety Report 11754554 (Version 1)
Quarter: 2015Q4

REPORT INFORMATION
  Report Type: Spontaneous
  Country: US (occurrence: None)
  Receive Date: 20151118
  Receipt Date: 20151118
  Transmission Date: 20160304
  Serious: Yes (Other)
  Sender: FDA-Public Use
  Company Number: None

PATIENT
  Age: 48 Year
  Sex: Female
  Weight: 87.3 kg

DRUGS (4)
  1. ALBUMIN [Concomitant]
     Active Substance: ALBUMIN (HUMAN)
  2. THIAMINE. [Concomitant]
     Active Substance: THIAMINE
  3. LEVOPHED [Suspect]
     Active Substance: NOREPINEPHRINE BITARTRATE
  4. NORMAL SALINE [Concomitant]
     Active Substance: SODIUM CHLORIDE

REACTIONS (2)
  - Incorrect drug administration rate [None]
  - Device issue [None]

NARRATIVE: CASE EVENT DATE: 20151107
